FAERS Safety Report 8366068-5 (Version None)
Quarter: 2012Q2

REPORT INFORMATION
  Report Type: 
  Country: None (occurrence: None)
  Receive Date: 20120517
  Receipt Date: 20120507
  Transmission Date: 20120825
  Serious: Yes (Death)
  Sender: FDA-Public Use
  Company Number: US-ELI_LILLY_AND_COMPANY-US201205002898

PATIENT
  Age: 65 Year
  Sex: Male

DRUGS (15)
  1. VYTORIN [Concomitant]
     Dosage: 1 DF, QD
     Dates: start: 20101222
  2. BUPROPION HCL [Concomitant]
     Dosage: 150 MG, QD
     Dates: start: 20101222
  3. NEXIUM [Concomitant]
     Dosage: 40 MG, QD
     Dates: start: 20101222
  4. NITROSTAT [Concomitant]
     Indication: CHEST PAIN
     Dosage: 0.3 MG, PRN
     Dates: start: 20110608
  5. METHADONE HCL [Concomitant]
     Dosage: 3 DF, QID
     Dates: start: 20110720
  6. ASPIRIN [Concomitant]
     Dosage: 81 MG, QD
     Dates: start: 20110608
  7. GEODON [Concomitant]
     Dosage: 80 MG, QD
     Dates: start: 20110608
  8. CYMBALTA [Suspect]
     Indication: DEPRESSION
     Dosage: 60 MG, EACH EVENING
  9. REGLAN [Concomitant]
     Dosage: 10 MG, QD
     Dates: start: 20110720
  10. GABAPENTIN [Concomitant]
     Dosage: 600 MG, QD
     Dates: start: 20110608
  11. OXYCODONE                          /00045603/ [Concomitant]
     Dosage: 15 MG, TID
     Dates: start: 20101222
  12. ANDROGEL [Concomitant]
     Dosage: 1 DF, EACH MORNING
     Dates: start: 20110608
  13. LITHIUM CARBONATE [Concomitant]
     Dosage: 150 MG, BID
     Dates: start: 20110720
  14. DIAZEPAM [Concomitant]
     Dosage: 10 MG, PRN
     Dates: start: 20110720
  15. OMEPRAZOLE [Concomitant]
     Dosage: 20 MG, BID
     Dates: start: 20110608

REACTIONS (1)
  - DEATH [None]
